FAERS Safety Report 9845556 (Version 2)
Quarter: 2014Q1

REPORT INFORMATION
  Report Type: Spontaneous
  Country: US (occurrence: US)
  Receive Date: 20140127
  Receipt Date: 20140211
  Transmission Date: 20141002
  Serious: No
  Sender: FDA-Public Use
  Company Number: US-PFIZER INC-2014018766

PATIENT
  Age: 40 Year
  Sex: Female

DRUGS (3)
  1. SUTENT [Suspect]
     Indication: RENAL CANCER
     Dosage: 37.5 MG, DAILY
     Route: 048
     Dates: start: 20131204
  2. DEXAMETHASONE [Concomitant]
     Dosage: UNK
  3. FAMOTIDINE [Concomitant]
     Dosage: UNK

REACTIONS (2)
  - Pallor [Unknown]
  - Lip pain [Unknown]
